FAERS Safety Report 7735385-1 (Version None)
Quarter: 2011Q3

REPORT INFORMATION
  Report Type: 
  Country: None (occurrence: None)
  Receive Date: 20110907
  Receipt Date: 20110831
  Transmission Date: 20111222
  Serious: Yes (Hospitalization, Other)
  Sender: FDA-Public Use
  Company Number: JP-PFIZER INC-2011130399

PATIENT
  Age: 62 Year
  Sex: Male
  Weight: 75 kg

DRUGS (9)
  1. FAMOTIDINE [Concomitant]
     Indication: GASTRITIS
     Dosage: 20 MG, 1X/DAY
     Route: 048
     Dates: start: 20100420, end: 20110611
  2. RABEPRAZOLE SODIUM [Concomitant]
     Indication: GASTROOESOPHAGEAL REFLUX DISEASE
     Dosage: 10 MG, 1X/DAY
     Route: 048
     Dates: start: 20110611, end: 20110613
  3. SULFASALAZINE [Suspect]
     Indication: COLITIS ULCERATIVE
     Dosage: 3 G, 1X/DAY
     Route: 048
     Dates: start: 20110516, end: 20110613
  4. LASIX [Concomitant]
     Indication: OEDEMA
     Dosage: 20 MG, 1X/DAY
     Route: 048
     Dates: start: 20090407, end: 20110611
  5. MUCOSTA [Concomitant]
     Indication: GASTRITIS
     Dosage: 100 MG, 3X/DAY
     Route: 048
     Dates: start: 20110511, end: 20110613
  6. CANDESARTAN CILEXETIL [Concomitant]
     Indication: HYPERTENSION
     Dosage: 8 MG, 1X/DAY
     Route: 048
     Dates: start: 20100420
  7. SPIRONOLACTONE [Concomitant]
     Indication: OEDEMA
     Dosage: 25 MG, 1X/DAY
     Route: 048
     Dates: start: 20090407
  8. ALLOPURINOL [Concomitant]
     Indication: HYPERURICAEMIA
     Dosage: 100 MG, 2X/DAY
     Route: 048
     Dates: start: 20090331
  9. LENDORMIN [Concomitant]
     Indication: INSOMNIA
     Dosage: 0.25 MG, 1X/DAY
     Route: 048
     Dates: start: 20101125

REACTIONS (7)
  - MALAISE [None]
  - DECREASED APPETITE [None]
  - NAUSEA [None]
  - HEPATIC FUNCTION ABNORMAL [None]
  - URINE AMYLASE INCREASED [None]
  - JAUNDICE [None]
  - DRUG ERUPTION [None]
